FAERS Safety Report 4562179-0 (Version None)
Quarter: 2005Q1

REPORT INFORMATION
  Report Type: 
  Country: None (occurrence: None)
  Receive Date: 20050121
  Receipt Date: 20050107
  Transmission Date: 20050727
  Serious: Yes (Hospitalization, Other)
  Sender: FDA-Public Use
  Company Number: HQWYE048317DEC04

PATIENT
  Age: 22 Year
  Sex: Female

DRUGS (1)
  1. PROTONIX [Suspect]
     Dosage: 30 MG (ONE DOSE), INTRAVENOUS
     Route: 042
     Dates: start: 20041210, end: 20041210

REACTIONS (2)
  - ANGINA PECTORIS [None]
  - TACHYCARDIA [None]
